FAERS Safety Report 4496853-1 (Version None)
Quarter: 2004Q4

REPORT INFORMATION
  Report Type: 
  Country: None (occurrence: None)
  Receive Date: 20041109
  Receipt Date: 20041029
  Transmission Date: 20050328
  Serious: Yes (Life-Threatening)
  Sender: FDA-Public Use
  Company Number: GB-GLAXOSMITHKLINE-B0349976A

PATIENT
  Age: 26 Year
  Sex: Female
  Weight: 69 kg

DRUGS (4)
  1. PAROXETINE [Suspect]
     Indication: OBSESSIVE-COMPULSIVE DISORDER
     Dosage: 10MG PER DAY
     Route: 048
     Dates: start: 20041001, end: 20041011
  2. VENTOLIN [Concomitant]
     Indication: ASTHMA
     Route: 065
     Dates: start: 19890101
  3. BECOTIDE [Concomitant]
     Indication: ASTHMA
     Route: 065
     Dates: start: 19890101
  4. CITALOPRAM [Concomitant]
     Dosage: 20MG AT NIGHT
     Route: 065

REACTIONS (4)
  - AGITATION [None]
  - DRUG WITHDRAWAL SYNDROME [None]
  - PANIC DISORDER [None]
  - SUICIDAL IDEATION [None]
